FAERS Safety Report 8444641-3 (Version None)
Quarter: 2012Q2

REPORT INFORMATION
  Report Type: 
  Country: None (occurrence: None)
  Receive Date: 20120618
  Receipt Date: 20120613
  Transmission Date: 20120825
  Serious: Yes (Hospitalization)
  Sender: FDA-Public Use
  Company Number: FR-PFIZER INC-2012141900

PATIENT
  Age: 45 Year
  Sex: Female

DRUGS (9)
  1. CREON [Concomitant]
  2. DEBRIDAT [Concomitant]
  3. QVAR 40 [Concomitant]
  4. MINOCIN [Concomitant]
  5. COLIMYCINE [Concomitant]
  6. MOTILIUM [Concomitant]
  7. NEBCIN [Suspect]
     Indication: CYSTIC FIBROSIS
     Dosage: 650 MG DAILY
     Route: 042
     Dates: start: 20120428, end: 20120504
  8. TAZOBACTAM [Suspect]
     Indication: CYSTIC FIBROSIS
     Dosage: UNK
     Route: 042
     Dates: start: 20120428, end: 20120504
  9. IRBESARTAN [Concomitant]

REACTIONS (2)
  - RENAL FAILURE ACUTE [None]
  - RENAL TUBULAR NECROSIS [None]
